FAERS Safety Report 9858056 (Version 1)
Quarter: 2014Q1

REPORT INFORMATION
  Report Type: Spontaneous
  Country: AU (occurrence: AU)
  Receive Date: 20140131
  Receipt Date: 20140131
  Transmission Date: 20141002
  Serious: Yes (Other)
  Sender: FDA-Public Use
  Company Number: PHHY2014AU011503

PATIENT
  Sex: Male

DRUGS (2)
  1. VOLTAREN [Suspect]
     Dosage: UNK UKN, UNK
  2. CELEBREX [Suspect]
     Indication: ARTHRALGIA
     Dosage: UNK (8 TABLETS TOTAL)

REACTIONS (4)
  - Mass [Unknown]
  - Abdominal pain upper [Unknown]
  - Dyspepsia [Unknown]
  - Back pain [Unknown]
